FAERS Safety Report 4686481-7 (Version None)
Quarter: 2005Q2

REPORT INFORMATION
  Report Type: 
  Country: None (occurrence: None)
  Receive Date: 20050609
  Receipt Date: 20050404
  Transmission Date: 20051028
  Serious: Yes (Death, Hospitalization)
  Sender: FDA-Public Use
  Company Number: US-SANOFI-SYNTHELABO-F01200500517

PATIENT
  Sex: Female

DRUGS (14)
  1. OXALIPLATIN [Suspect]
     Indication: COLON CANCER METASTATIC
     Route: 042
     Dates: start: 20041228, end: 20041228
  2. FLUOROURACIL [Suspect]
     Dosage: 376 MG IV BOLUS AND 752 MG IV INFUSION
     Route: 042
     Dates: start: 20041228, end: 20041229
  3. LEUCOVORIN CALCIUM [Suspect]
     Route: 042
     Dates: start: 20041228, end: 20041228
  4. BEVACIZUMAB [Suspect]
     Route: 042
     Dates: start: 20041228, end: 20041228
  5. ERLOTINIB [Suspect]
     Route: 048
     Dates: start: 20040908, end: 20041231
  6. HYZAAR [Concomitant]
     Dosage: UNK
     Route: 065
     Dates: end: 20050119
  7. PEPCID [Concomitant]
  8. PREMARIN [Concomitant]
  9. LOMOTIL [Concomitant]
     Dosage: UNK
     Route: 065
     Dates: start: 20040922
  10. LOPERAMIDE HYDROCHLORIDE [Concomitant]
     Dosage: UNK
     Route: 065
     Dates: start: 20040922
  11. COUMADIN [Concomitant]
     Dosage: UNK
     Route: 065
     Dates: start: 20041117, end: 20050112
  12. AVINZA [Concomitant]
     Dosage: UNK
     Route: 065
     Dates: start: 20050112, end: 20050119
  13. FLEXERIL [Concomitant]
     Dosage: UNK
     Route: 065
     Dates: start: 20041227, end: 20050119
  14. FUROSEMIDE [Concomitant]
     Dosage: UNK
     Route: 065
     Dates: start: 20050123, end: 20050123

REACTIONS (28)
  - ALANINE AMINOTRANSFERASE INCREASED [None]
  - ASPARTATE AMINOTRANSFERASE INCREASED [None]
  - ASTHENIA [None]
  - ATELECTASIS [None]
  - BACK PAIN [None]
  - BACTERIAL SEPSIS [None]
  - BLOOD ALKALINE PHOSPHATASE INCREASED [None]
  - BLOOD CALCIUM DECREASED [None]
  - BLOOD SODIUM DECREASED [None]
  - BLOOD UREA DECREASED [None]
  - BODY TEMPERATURE INCREASED [None]
  - CONFUSIONAL STATE [None]
  - DYSARTHRIA [None]
  - ENCEPHALOPATHY [None]
  - HAEMATOCRIT DECREASED [None]
  - HAEMATOMA [None]
  - HAEMOGLOBIN DECREASED [None]
  - HEPATIC LESION [None]
  - INTERVERTEBRAL DISC DISORDER [None]
  - MASS [None]
  - METASTASIS [None]
  - PELVIC MASS [None]
  - PLATELET COUNT DECREASED [None]
  - PLEURAL EFFUSION [None]
  - PROTHROMBIN TIME PROLONGED [None]
  - SEPSIS [None]
  - SPINAL CORD OEDEMA [None]
  - WHITE BLOOD CELL COUNT INCREASED [None]
